FAERS Safety Report 9016829 (Version 1)
Quarter: 2013Q1

REPORT INFORMATION
  Report Type: Spontaneous
  Country: US (occurrence: US)
  Receive Date: 20130117
  Receipt Date: 20130117
  Transmission Date: 20140127
  Serious: Yes (Hospitalization)
  Sender: FDA-Public Use
  Company Number: US-ELI_LILLY_AND_COMPANY-US201301003739

PATIENT
  Age: 65 Year
  Sex: Female

DRUGS (3)
  1. ZYPREXA [Suspect]
     Dosage: 7.5 MG, UNK
  2. ATIVAN [Concomitant]
  3. EVISTA [Concomitant]

REACTIONS (3)
  - Mental disorder [Unknown]
  - Weight increased [Unknown]
  - Confusional state [Not Recovered/Not Resolved]
